FAERS Safety Report 8875254 (Version 2)
Quarter: 2012Q4

REPORT INFORMATION
  Report Type: 
  Country: TW (occurrence: TW)
  Receive Date: 20121023
  Receipt Date: 20121113
  Transmission Date: 20130627
  Serious: Yes (Life-Threatening, Hospitalization)
  Sender: FDA-Public Use
  Company Number: TW-BAYER-2012-110843

PATIENT
  Sex: Female

DRUGS (2)
  1. ULTRAVIST [Suspect]
     Indication: CT SCAN
     Dosage: 75 ml, UNK
     Route: 042
  2. ULTRAVIST [Suspect]
     Indication: HEART DISEASE, UNSPECIFIED

REACTIONS (3)
  - Loss of consciousness [Recovered/Resolved]
  - Blood pressure immeasurable [Recovered/Resolved]
  - Pulse absent [Recovered/Resolved]
